FAERS Safety Report 22290373 (Version 1)
Quarter: 2023Q2

REPORT INFORMATION
  Report Type: Spontaneous
  Country: TR (occurrence: TR)
  Receive Date: 20230505
  Receipt Date: 20230505
  Transmission Date: 20230721
  Serious: Yes (Other)
  Sender: FDA-Public Use
  Company Number: TR-PFIZER INC-PV202300076784

PATIENT
  Sex: Male

DRUGS (1)
  1. AVIBACTAM SODIUM\CEFTAZIDIME [Suspect]
     Active Substance: AVIBACTAM SODIUM\CEFTAZIDIME
     Indication: Lung transplant
     Dosage: UNK

REACTIONS (6)
  - Osteoporosis [Unknown]
  - Bone pain [Unknown]
  - Myalgia [Unknown]
  - Fatigue [Unknown]
  - Pain in extremity [Unknown]
  - Off label use [Unknown]
